FAERS Safety Report 6221912-2 (Version None)
Quarter: 2009Q2

REPORT INFORMATION
  Report Type: 
  Country: None (occurrence: None)
  Receive Date: 20090611
  Receipt Date: 20070531
  Transmission Date: 20091009
  Serious: Yes (Other)
  Sender: FDA-Public Use
  Company Number: US-ASTRAZENECA-2006UW11252

PATIENT
  Age: 15949 Day
  Sex: Female
  Weight: 104 kg

DRUGS (16)
  1. SEROQUEL [Suspect]
     Indication: MOOD ALTERED
     Route: 048
  2. SEROQUEL [Suspect]
     Dosage: 200 MG - 400 MG DAILY
     Route: 048
     Dates: start: 19990422
  3. ZYPREXA [Suspect]
  4. HALDOL [Suspect]
  5. RISPERDAL [Suspect]
  6. AZMACORT [Concomitant]
     Dosage: 2 PUFFS EVERY 4-6 HOURS, P.R.N
     Route: 045
     Dates: start: 19990422
  7. ALBUTEROL [Concomitant]
     Dosage: 2 PUFFS EVERY 4-6 HR, P.R.N
     Route: 045
     Dates: start: 19980417
  8. BUSPAR [Concomitant]
     Dates: start: 20040811
  9. NEURONTIN [Concomitant]
     Indication: DIABETIC FOOT
     Dosage: 200 MG - 900 M DAILY
     Route: 048
     Dates: start: 19990422
  10. LEXAPRO [Concomitant]
     Indication: DEPRESSION
     Route: 048
     Dates: start: 20051010
  11. PROZAC [Concomitant]
     Route: 048
     Dates: start: 19990422
  12. DEPAKOTE [Concomitant]
     Route: 048
     Dates: start: 19990422
  13. TRAZODONE HCL [Concomitant]
     Indication: INSOMNIA
     Route: 048
     Dates: start: 19980417
  14. KLONOPIN [Concomitant]
     Indication: ANXIETY
     Route: 048
     Dates: start: 20051010
  15. LISINOPRIL [Concomitant]
     Indication: HYPERTENSION
     Route: 048
     Dates: start: 20051010
  16. LISINOPRIL [Concomitant]
     Indication: DIABETES MELLITUS
     Route: 048
     Dates: start: 20051010

REACTIONS (3)
  - DIABETES MELLITUS [None]
  - DIABETIC NEUROPATHY [None]
  - SUICIDAL IDEATION [None]
